FAERS Safety Report 10363558 (Version 3)
Quarter: 2014Q3

REPORT INFORMATION
  Report Type: Spontaneous
  Country: BR (occurrence: BR)
  Receive Date: 20140805
  Receipt Date: 20140823
  Transmission Date: 20150326
  Serious: Yes (Life-Threatening, Hospitalization, Other)
  Sender: FDA-Public Use
  Company Number: PHHY2014BR095895

PATIENT
  Age: 82 Year
  Sex: Male
  Weight: 78 kg

DRUGS (9)
  1. PANTOPRAZOLE [Concomitant]
     Active Substance: PANTOPRAZOLE SODIUM
     Indication: GASTRIC DISORDER
     Dosage: 1 DF (1 TABLET), DAILY
     Route: 048
  2. QUEROPAX [Concomitant]
     Active Substance: QUETIAPINE FUMARATE
     Indication: ANXIETY
     Dosage: 1 DF (1 TABLET), DAILY
     Route: 048
  3. EXODUS//ESCITALOPRAM OXALATE [Concomitant]
     Active Substance: ESCITALOPRAM OXALATE
     Indication: ANXIETY
     Dosage: 1 DF (1 TABLET), DAILY
     Route: 048
  4. TRILEPTAL [Suspect]
     Active Substance: OXCARBAZEPINE
     Indication: CONVULSION
     Dosage: UNK UKN, UNK
     Route: 048
     Dates: start: 20140625, end: 20140717
  5. CLOPIDOGREL [Concomitant]
     Active Substance: CLOPIDOGREL BISULFATE
     Indication: CEREBROVASCULAR ACCIDENT
     Dosage: 1 DF (1 TABLET), DAILY
     Route: 048
  6. AMIODARONE [Concomitant]
     Active Substance: AMIODARONE
     Indication: CARDIAC DISORDER
     Dosage: 1 DF (1 TABLET), DAILY
     Route: 048
     Dates: start: 20140515
  7. GINKGO BILOBA [Concomitant]
     Active Substance: GINKGO
     Indication: MEMORY IMPAIRMENT
     Dosage: 1 DF (1 TABLET), DAILY
     Route: 048
  8. SIMVASTATIN. [Concomitant]
     Active Substance: SIMVASTATIN
     Indication: BLOOD CHOLESTEROL INCREASED
     Dosage: 1 DF (1 TABLET),DAILY
     Route: 048
     Dates: start: 201405
  9. CARVEDILOL. [Concomitant]
     Active Substance: CARVEDILOL
     Indication: CARDIAC DISORDER
     Dosage: 2 DF (2 TABLETS), DAILY
     Route: 048
     Dates: start: 20140515

REACTIONS (13)
  - Pyrexia [Recovered/Resolved]
  - Aphagia [Unknown]
  - Terminal state [Unknown]
  - Hypertension [Recovered/Resolved]
  - Skin discolouration [Unknown]
  - Urticaria [Recovered/Resolved]
  - Diabetes mellitus [Recovered/Resolved]
  - Choking sensation [Recovered/Resolved]
  - Hypersensitivity [Unknown]
  - Skin exfoliation [Unknown]
  - Oral pustule [Recovered/Resolved]
  - Blood glucose increased [Recovered/Resolved]
  - Skin reaction [Unknown]

NARRATIVE: CASE EVENT DATE: 20140715
